FAERS Safety Report 7972492 (Version 3)
Quarter: 2014Q1

REPORT INFORMATION
  Report Type: Spontaneous
  Country: US (occurrence: US)
  Receive Date: 20110603
  Receipt Date: 20140205
  Transmission Date: 20141002
  Serious: Yes (Hospitalization, Other)
  Sender: FDA-Public Use
  Company Number: US-BAYER-2010-002084

PATIENT
  Sex: Female
  Weight: 61.22 kg

DRUGS (4)
  1. YASMIN [Suspect]
     Indication: PREMENSTRUAL SYNDROME
     Dosage: UNK
     Dates: start: 1995, end: 2005
  2. YASMIN [Suspect]
     Indication: MENORRHAGIA
  3. YAZ [Suspect]
     Indication: PREMENSTRUAL SYNDROME
     Dosage: UNK
     Dates: start: 2006, end: 2008
  4. YAZ [Suspect]
     Indication: MENORRHAGIA

REACTIONS (2)
  - Gallbladder disorder [Unknown]
  - Cholelithiasis [None]
